FAERS Safety Report 19628502 (Version 1)
Quarter: 2021Q3

REPORT INFORMATION
  Report Type: Report from Study
  Country: US (occurrence: US)
  Receive Date: 20210728
  Receipt Date: 20210728
  Transmission Date: 20211014
  Serious: Yes (Other)
  Sender: FDA-Public Use
  Company Number: US-JAZZ-2021-US-013350

PATIENT
  Age: 43 Year
  Sex: Female
  Weight: 90.7 kg

DRUGS (3)
  1. XYREM [Suspect]
     Active Substance: SODIUM OXYBATE
     Dosage: 3 GRAM, BID
     Route: 048
     Dates: start: 201809, end: 201809
  2. XYREM [Suspect]
     Active Substance: SODIUM OXYBATE
     Dosage: 4.5 GRAM, BID
     Route: 048
     Dates: start: 201809
  3. XYREM [Suspect]
     Active Substance: SODIUM OXYBATE
     Indication: NARCOLEPSY
     Dosage: 2.25 GRAM, BID
     Route: 048
     Dates: start: 201809, end: 201809

REACTIONS (9)
  - Foot fracture [Unknown]
  - Diastolic dysfunction [Unknown]
  - Essential hypertension [Unknown]
  - Depression [Unknown]
  - Iron deficiency anaemia [Unknown]
  - Hiatus hernia [Unknown]
  - Diabetes mellitus [Recovering/Resolving]
  - COVID-19 [Unknown]
  - Hypercholesterolaemia [Unknown]

NARRATIVE: CASE EVENT DATE: 201006
